FAERS Safety Report 7210060-0 (Version None)
Quarter: 2011Q1

REPORT INFORMATION
  Report Type: 
  Country: None (occurrence: None)
  Receive Date: 20110105
  Receipt Date: 20090701
  Transmission Date: 20110831
  Serious: No
  Sender: FDA-Public Use
  Company Number: 2009BI021194

PATIENT
  Sex: Female

DRUGS (1)
  1. TYSABRI [Suspect]
     Indication: MULTIPLE SCLEROSIS
     Route: 042
     Dates: start: 20070312

REACTIONS (11)
  - MUSCULOSKELETAL STIFFNESS [None]
  - TIC [None]
  - ABASIA [None]
  - VISUAL IMPAIRMENT [None]
  - MULTIPLE SCLEROSIS RELAPSE [None]
  - COGNITIVE DISORDER [None]
  - DYSGRAPHIA [None]
  - PHOTOPSIA [None]
  - VITREOUS FLOATERS [None]
  - VISION BLURRED [None]
  - BALANCE DISORDER [None]
